FAERS Safety Report 12091246 (Version 1)
Quarter: 2016Q1

REPORT INFORMATION
  Report Type: Other
  Country: IT (occurrence: IT)
  Receive Date: 20160218
  Receipt Date: 20160218
  Transmission Date: 20160526
  Serious: Yes (Other)
  Sender: FDA-Public Use
  Company Number: IT-MYLANLABS-2016M1006017

PATIENT

DRUGS (2)
  1. LEVOFLOXACIN 500 MG FILM-COATED TABLETS [Suspect]
     Active Substance: LEVOFLOXACIN
     Indication: BRONCHITIS
     Dosage: 500 MG, BID
     Route: 048
     Dates: start: 201601
  2. LEVOFLOXACIN 500 MG FILM-COATED TABLETS [Suspect]
     Active Substance: LEVOFLOXACIN
     Dosage: 500 MG, QD
     Route: 048

REACTIONS (5)
  - Throat irritation [Recovering/Resolving]
  - Arthralgia [Not Recovered/Not Resolved]
  - Burning sensation [Recovering/Resolving]
  - Pharyngeal oedema [Recovering/Resolving]
  - Joint swelling [Not Recovered/Not Resolved]

NARRATIVE: CASE EVENT DATE: 201601
